FAERS Safety Report 6139760-0 (Version None)
Quarter: 2009Q2

REPORT INFORMATION
  Report Type: 
  Country: None (occurrence: None)
  Receive Date: 20090401
  Receipt Date: 20090324
  Transmission Date: 20091009
  Serious: Yes (Other)
  Sender: FDA-Public Use
  Company Number: A0747082A

PATIENT
  Age: 44 Year
  Sex: Female

DRUGS (7)
  1. TREXIMET [Suspect]
     Indication: MIGRAINE
     Dosage: 1TAB AS REQUIRED
     Route: 048
  2. IMITREX [Suspect]
     Route: 065
  3. CREON [Concomitant]
     Route: 048
  4. OSCAL [Concomitant]
     Route: 048
  5. MULTI-VITAMIN [Concomitant]
     Route: 048
  6. FLAX SEED [Concomitant]
     Route: 048
  7. IRON [Concomitant]
     Route: 048

REACTIONS (7)
  - FLUSHING [None]
  - GASTRIC DISORDER [None]
  - HEMIPARESIS [None]
  - HOT FLUSH [None]
  - MALAISE [None]
  - THERAPEUTIC RESPONSE DECREASED [None]
  - TREMOR [None]
